FAERS Safety Report 15674889 (Version 1)
Quarter: 2018Q4

REPORT INFORMATION
  Report Type: Spontaneous
  Country: JP (occurrence: JP)
  Receive Date: 20181130
  Receipt Date: 20181130
  Transmission Date: 20190205
  Serious: Yes (Other)
  Sender: FDA-Public Use
  Company Number: JP-BRISTOL-MYERS SQUIBB COMPANY-BMS-2018-110366

PATIENT
  Age: 82 Year
  Sex: Female

DRUGS (7)
  1. GLIBENCLAMIDE [Concomitant]
     Active Substance: GLYBURIDE
     Indication: DIABETES MELLITUS
     Dosage: 5 MG, QD
     Route: 048
  2. LIXISENATIDE [Concomitant]
     Active Substance: LIXISENATIDE
     Indication: HYPERGLYCAEMIA
     Dosage: 20 ?G, UNK
     Route: 065
  3. GLIMEPIRIDE. [Concomitant]
     Active Substance: GLIMEPIRIDE
     Indication: DIABETES MELLITUS
     Dosage: 1 MG, UNK
     Route: 065
  4. LIXISENATIDE [Concomitant]
     Active Substance: LIXISENATIDE
     Indication: PRODUCT USED FOR UNKNOWN INDICATION
     Dosage: 15 ?G, UNK
     Route: 065
  5. METGLUCO [Suspect]
     Active Substance: METFORMIN HYDROCHLORIDE
     Indication: DIABETES MELLITUS
     Dosage: 500 MG, UNK
     Route: 048
  6. ACARBOSE. [Concomitant]
     Active Substance: ACARBOSE
     Indication: HYPERGLYCAEMIA
     Dosage: 300 MG, UNK
     Route: 065
  7. SITAGLIPTIN PHOSPHATE MONOHYDRATE [Concomitant]
     Active Substance: SITAGLIPTIN PHOSPHATE
     Indication: HYPERGLYCAEMIA
     Dosage: 50 MG, QD
     Route: 065

REACTIONS (4)
  - Nausea [Unknown]
  - Abdominal distension [Unknown]
  - Hypoglycaemia [Recovered/Resolved]
  - Polymyalgia rheumatica [Recovered/Resolved]
